FAERS Safety Report 6912892-2 (Version None)
Quarter: 2010Q3

REPORT INFORMATION
  Report Type: 
  Country: None (occurrence: None)
  Receive Date: 20100806
  Receipt Date: 20090227
  Transmission Date: 20110219
  Serious: No
  Sender: FDA-Public Use
  Company Number: US-PFIZER INC-2006063040

PATIENT
  Sex: Female
  Weight: 62.6 kg

DRUGS (4)
  1. DETROL LA [Suspect]
     Indication: URINARY INCONTINENCE
     Dosage: 4 MG, 2X/DAY
  2. DETROL LA [Suspect]
     Indication: MICTURITION URGENCY
     Route: 065
  3. DITROPAN [Suspect]
     Indication: MICTURITION URGENCY
     Dates: start: 20060101, end: 20060401
  4. PREMARIN [Concomitant]

REACTIONS (3)
  - ABDOMINAL DISCOMFORT [None]
  - DRUG EFFECT DECREASED [None]
  - DYSPEPSIA [None]
